FAERS Safety Report 9638863 (Version 1)
Quarter: 2013Q4

REPORT INFORMATION
  Report Type: Spontaneous
  Country: US (occurrence: US)
  Receive Date: 20131022
  Receipt Date: 20131022
  Transmission Date: 20140711
  Serious: No
  Sender: FDA-Public Use
  Company Number: US-BRISTOL-MYERS SQUIBB COMPANY-19139526

PATIENT
  Age: 74 Year
  Sex: Female
  Weight: 51.7 kg

DRUGS (5)
  1. ELIQUIS [Suspect]
     Indication: ATRIAL FIBRILLATION
     Dates: start: 201306
  2. CALCIUM [Concomitant]
  3. VITAMIN B12 [Concomitant]
  4. VAGIFEM [Concomitant]
  5. PROPAFENONE [Concomitant]

REACTIONS (4)
  - Cardiac flutter [Unknown]
  - Nausea [Unknown]
  - Arthralgia [Recovering/Resolving]
  - Burning sensation [Unknown]
